FAERS Safety Report 25220601 (Version 1)
Quarter: 2025Q2

REPORT INFORMATION
  Report Type: Report from Study
  Country: US (occurrence: US)
  Receive Date: 20250421
  Receipt Date: 20250421
  Transmission Date: 20250716
  Serious: Yes (Other)
  Sender: SANDOZ
  Company Number: US-SANDOZ-SDZ2025US024390

PATIENT
  Sex: Female
  Weight: 32 kg

DRUGS (1)
  1. OMNITROPE [Suspect]
     Active Substance: SOMATROPIN
     Indication: Turner^s syndrome
     Dosage: 1.6 MG 2 DOSE EVERY N/A N/A
     Route: 058

REACTIONS (1)
  - Knee operation [Unknown]
